FAERS Safety Report 4990659-2 (Version None)
Quarter: 2006Q2

REPORT INFORMATION
  Report Type: 
  Country: None (occurrence: None)
  Receive Date: 20060503
  Receipt Date: 20060501
  Transmission Date: 20061013
  Serious: Yes (Hospitalization)
  Sender: FDA-Public Use
  Company Number: MX-SANOFI-SYNTHELABO-F01200601146

PATIENT
  Sex: Female

DRUGS (4)
  1. OXALIPLATIN [Suspect]
     Indication: COLORECTAL CANCER METASTATIC
     Route: 042
     Dates: start: 20060328, end: 20060328
  2. FLUOROURACIL [Suspect]
     Dosage: 512 MG IV BOLUS FOLLOWED BY 765 MG INFUSION TWICE EVERY 2 WEEKS
     Route: 042
     Dates: start: 20060328
  3. LEUCOVORIN [Suspect]
     Route: 042
     Dates: start: 20060328, end: 20060328
  4. AVASTIN [Suspect]
     Route: 042
     Dates: start: 20060327, end: 20060327

REACTIONS (4)
  - ANOREXIA [None]
  - DIZZINESS [None]
  - NAUSEA [None]
  - RENAL FAILURE [None]
